FAERS Safety Report 6394250-5 (Version None)
Quarter: 2009Q4

REPORT INFORMATION
  Report Type: 
  Country: None (occurrence: None)
  Receive Date: 20091006
  Receipt Date: 20090924
  Transmission Date: 20100525
  Serious: Yes (Hospitalization)
  Sender: FDA-Public Use
  Company Number: 2009AL006249

PATIENT
  Age: 27 Year
  Sex: Female

DRUGS (4)
  1. ALPRAZOLAM [Suspect]
  2. FLUNITRAZEPAM [Concomitant]
  3. PAROXETINE HCL [Concomitant]
  4. ETHYL LOFLAZEPATE [Concomitant]

REACTIONS (5)
  - DRUG LEVEL INCREASED [None]
  - HEPATIC FUNCTION ABNORMAL [None]
  - PYREXIA [None]
  - RASH ERYTHEMATOUS [None]
  - STEVENS-JOHNSON SYNDROME [None]
